FAERS Safety Report 5706037-4 (Version None)
Quarter: 2008Q2

REPORT INFORMATION
  Report Type: 
  Country: None (occurrence: None)
  Receive Date: 20080415
  Receipt Date: 20080409
  Transmission Date: 20081010
  Serious: Yes (Other)
  Sender: FDA-Public Use
  Company Number: PR-BRISTOL-MYERS SQUIBB COMPANY-14145387

PATIENT
  Age: 50 Year
  Sex: Female

DRUGS (5)
  1. ORENCIA [Suspect]
     Dates: start: 20080402, end: 20080402
  2. GLUCOPHAGE [Concomitant]
  3. GLUCOSAMINE [Concomitant]
  4. NEXIUM [Concomitant]
  5. HUMALOG [Concomitant]

REACTIONS (3)
  - HEART RATE DECREASED [None]
  - HYPERHIDROSIS [None]
  - HYPERTENSION [None]
